FAERS Safety Report 4889902-X (Version None)
Quarter: 2006Q1

REPORT INFORMATION
  Report Type: 
  Country: None (occurrence: None)
  Receive Date: 20060124
  Receipt Date: 20060113
  Transmission Date: 20060701
  Serious: Yes (Other)
  Sender: FDA-Public Use
  Company Number: NZ-MERCK-0601NZL00006

PATIENT
  Sex: Female

DRUGS (10)
  1. VIOXX [Suspect]
     Indication: OSTEOARTHRITIS
     Route: 048
     Dates: start: 20031023
  2. VIOXX [Suspect]
     Route: 048
     Dates: start: 20040324
  3. VIOXX [Suspect]
     Route: 048
     Dates: start: 20040816, end: 20040801
  4. VIOXX [Suspect]
     Route: 048
     Dates: start: 20040827, end: 20041001
  5. DICLOFENAC [Concomitant]
     Route: 065
  6. OMEPRAZOLE [Concomitant]
     Route: 065
  7. MEPERIDINE HYDROCHLORIDE [Concomitant]
     Indication: PAIN
     Route: 065
  8. PROCHLORPERAZINE MALEATE [Concomitant]
     Route: 065
  9. ACETAMINOPHEN [Concomitant]
     Route: 065
  10. FOSAMAX [Concomitant]
     Indication: OSTEOPOROSIS
     Route: 048
     Dates: start: 20050411

REACTIONS (2)
  - CARDIOVASCULAR DISORDER [None]
  - CEREBRAL INFARCTION [None]
